FAERS Safety Report 5869427-5 (Version None)
Quarter: 2008Q3

REPORT INFORMATION
  Report Type: 
  Country: None (occurrence: None)
  Receive Date: 20080828
  Receipt Date: 20080818
  Transmission Date: 20090109
  Serious: Yes (Other)
  Sender: FDA-Public Use
  Company Number: 2008US001464

PATIENT
  Age: 4 Year
  Sex: Male
  Weight: 14.9 kg

DRUGS (5)
  1. AMBISOME [Suspect]
     Indication: BRONCHOPULMONARY ASPERGILLOSIS
     Dosage: 100 MG, UID/QD, PARENTERAL
     Route: 051
     Dates: start: 20080416, end: 20080501
  2. ITRACONAZOLE [Suspect]
     Indication: BRONCHOPULMONARY ASPERGILLOSIS
     Dosage: 50 MG, UID/QD, ORAL; 100 MG, UID/QD, ORAL; 150 MG, UID/QD, ORAL
     Dates: start: 20071205, end: 20080424
  3. ITRACONAZOLE [Suspect]
     Indication: BRONCHOPULMONARY ASPERGILLOSIS
     Dosage: 50 MG, UID/QD, ORAL; 100 MG, UID/QD, ORAL; 150 MG, UID/QD, ORAL
     Dates: start: 20080425, end: 20080430
  4. ITRACONAZOLE [Suspect]
     Indication: BRONCHOPULMONARY ASPERGILLOSIS
     Dosage: 50 MG, UID/QD, ORAL; 100 MG, UID/QD, ORAL; 150 MG, UID/QD, ORAL
     Dates: start: 20080501
  5. SULFAMETHOXAZOLE AND TRIMETHOPRIM [Concomitant]

REACTIONS (4)
  - GAIT DISTURBANCE [None]
  - HYPOKALAEMIA [None]
  - RENAL IMPAIRMENT [None]
  - RHABDOMYOLYSIS [None]
